FAERS Safety Report 15261403 (Version 1)
Quarter: 2018Q3

REPORT INFORMATION
  Report Type: Spontaneous
  Country: GB (occurrence: GB)
  Receive Date: 20180809
  Receipt Date: 20180809
  Transmission Date: 20181010
  Serious: Yes (Other)
  Sender: FDA-Public Use
  Company Number: GB-GLAXOSMITHKLINE-GB2018138937

PATIENT
  Age: 31 Year
  Sex: Female
  Weight: 61 kg

DRUGS (2)
  1. TRAZODONE [Concomitant]
     Active Substance: TRAZODONE HYDROCHLORIDE
     Indication: PRODUCT USED FOR UNKNOWN INDICATION
     Dosage: UNK
     Route: 065
  2. LAMOTRIGINE. [Suspect]
     Active Substance: LAMOTRIGINE
     Indication: BIPOLAR DISORDER
     Dosage: 75MG MORNING, 50MG AFTERNOON
     Route: 048
     Dates: start: 20180216, end: 20180628

REACTIONS (2)
  - Alopecia [Recovering/Resolving]
  - Memory impairment [Recovered/Resolved with Sequelae]

NARRATIVE: CASE EVENT DATE: 20180316
